FAERS Safety Report 7179400-5 (Version None)
Quarter: 2010Q4

REPORT INFORMATION
  Report Type: 
  Country: None (occurrence: None)
  Receive Date: 20101208
  Receipt Date: 20101122
  Transmission Date: 20110411
  Serious: Yes (Hospitalization)
  Sender: FDA-Public Use
  Company Number: DSA_44445_2010

PATIENT
  Age: 82 Year
  Sex: Female

DRUGS (13)
  1. MASDIL (MASDIL - DILTIAZEM HYDROCHLORIDE) 120 MG (NOT SEPECIFIC) [Suspect]
     Indication: PRODUCT USED FOR UNKNOWN INDICATION
     Dosage: 120 MG MID ORAL
     Route: 048
     Dates: start: 20100101, end: 20100707
  2. ACREL [Concomitant]
  3. ATACAND HCT [Concomitant]
  4. DAFALGAN [Concomitant]
  5. FERRO SNAL COMP /01493401/ [Concomitant]
  6. HIDROFEROL [Concomitant]
  7. INSULIN HUMAN INSULATED [Concomitant]
  8. LESCOL [Concomitant]
  9. MOXON [Concomitant]
  10. RENAGEL [Concomitant]
  11. TERTENSIF [Concomitant]
  12. TROMALYT [Concomitant]
  13. XALATAN [Concomitant]

REACTIONS (5)
  - BRADYARRHYTHMIA [None]
  - DIZZINESS [None]
  - HYPERHIDROSIS [None]
  - LOSS OF CONSCIOUSNESS [None]
  - PALLOR [None]
